FAERS Safety Report 12137319 (Version 1)
Quarter: 2016Q1

REPORT INFORMATION
  Report Type: Spontaneous
  Country: US (occurrence: US)
  Receive Date: 20160302
  Receipt Date: 20160302
  Transmission Date: 20160526
  Serious: No
  Sender: FDA-Public Use
  Company Number: US-ACTAVIS-2016-02323

PATIENT
  Age: 74 Year
  Sex: Female

DRUGS (2)
  1. METHOTREXATE [Concomitant]
     Active Substance: METHOTREXATE
     Indication: PSORIASIS
     Dosage: UNK UNK, UNKNOWN
     Route: 065
  2. OXYTROL [Suspect]
     Active Substance: OXYBUTYNIN
     Indication: HYPERTONIC BLADDER
     Dosage: 3.9 MG, ONE PATCH EVERY 4 DAYS
     Route: 062

REACTIONS (6)
  - Medication residue present [None]
  - Application site irritation [Not Recovered/Not Resolved]
  - Product difficult to remove [None]
  - Drug ineffective [Not Recovered/Not Resolved]
  - Nocturia [None]
  - Application site pruritus [Not Recovered/Not Resolved]
